FAERS Safety Report 10149348 (Version 1)
Quarter: 2014Q2

REPORT INFORMATION
  Report Type: Report from Study
  Country: US (occurrence: None)
  Receive Date: 20140430
  Receipt Date: 20140430
  Transmission Date: 20141212
  Serious: Yes (Other)
  Sender: FDA-Public Use
  Company Number: AUR-APL-2014-05103

PATIENT
  Age: 62 Year
  Sex: Female

DRUGS (3)
  1. METFORMIN (METFORMIN) [Suspect]
     Indication: BLOOD GLUCOSE INCREASED
  2. ENBREL (ETANERCEPT) [Suspect]
     Indication: PSORIASIS
     Route: 058
     Dates: start: 20121009
  3. HUMALOG (INSULIN LISPRO) [Suspect]
     Indication: BLOOD GLUCOSE INCREASED

REACTIONS (3)
  - Renal failure [None]
  - Blood glucose decreased [None]
  - Blood glucose increased [None]
